FAERS Safety Report 7684817-6 (Version None)
Quarter: 2011Q3

REPORT INFORMATION
  Report Type: 
  Country: None (occurrence: None)
  Receive Date: 20110816
  Receipt Date: 20110726
  Transmission Date: 20111222
  Serious: No
  Sender: FDA-Public Use
  Company Number: US-BAYER-2011-065979

PATIENT
  Age: 58 Year
  Sex: Female
  Weight: 68.027 kg

DRUGS (4)
  1. ALEVE (CAPLET) [Suspect]
     Indication: BACK PAIN
     Dosage: 1 DF, ONCE, BOTTLE COUNT 20S
     Route: 048
     Dates: start: 20110724, end: 20110724
  2. HORMONES NOS [Concomitant]
  3. ALEVE (CAPLET) [Suspect]
     Dosage: 1 DF, ONCE, BOTTLE COUNT 20S
     Route: 048
     Dates: start: 20110725, end: 20110725
  4. VITAMIN TAB [Concomitant]
     Indication: VITAMIN SUPPLEMENTATION

REACTIONS (3)
  - MIDDLE INSOMNIA [None]
  - TINNITUS [None]
  - BACK PAIN [None]
